FAERS Safety Report 10275521 (Version 1)
Quarter: 2014Q2

REPORT INFORMATION
  Report Type: Spontaneous
  Country: US (occurrence: None)
  Receive Date: 20140630
  Receipt Date: 20140630
  Transmission Date: 20141212
  Serious: No
  Sender: FDA-Public Use
  Company Number: None

PATIENT
  Age: 14 Year
  Sex: Female
  Weight: 43.09 kg

DRUGS (1)
  1. CLEAN + CLEAR CONTINUOUS CONTROL 10% BENZOYL PEROXIDE JOHNSON + JOHNSON [Suspect]
     Dates: start: 20140605, end: 20140606

REACTIONS (2)
  - Drug hypersensitivity [None]
  - Pain [None]
